FAERS Safety Report 23978216 (Version 2)
Quarter: 2024Q3

REPORT INFORMATION
  Report Type: Report from Study
  Country: US (occurrence: US)
  Receive Date: 20240614
  Receipt Date: 20240808
  Transmission Date: 20241017
  Serious: Yes (Hospitalization, Other)
  Sender: ABBVIE
  Company Number: US-ABBVIE-5795095

PATIENT
  Sex: Female

DRUGS (3)
  1. HUMIRA [Suspect]
     Active Substance: ADALIMUMAB
     Indication: Psoriasis
     Route: 058
  2. SKYRIZI [Suspect]
     Active Substance: RISANKIZUMAB-RZAA
     Indication: Psoriasis
     Route: 058
     Dates: start: 20231018
  3. SKYRIZI [Suspect]
     Active Substance: RISANKIZUMAB-RZAA
     Route: 058
     Dates: start: 20220705, end: 20220705

REACTIONS (8)
  - Polymyositis [Not Recovered/Not Resolved]
  - Viral infection [Not Recovered/Not Resolved]
  - Musculoskeletal disorder [Unknown]
  - Exposure to communicable disease [Not Recovered/Not Resolved]
  - Diarrhoea [Unknown]
  - Vomiting [Unknown]
  - Cytomegalovirus infection [Unknown]
  - Escherichia urinary tract infection [Unknown]

NARRATIVE: CASE EVENT DATE: 20220101
